FAERS Safety Report 18280153 (Version 1)
Quarter: 2020Q3

REPORT INFORMATION
  Report Type: Spontaneous
  Country: FR (occurrence: FR)
  Receive Date: 20200917
  Receipt Date: 20200917
  Transmission Date: 20201103
  Serious: Yes (Hospitalization)
  Sender: FDA-Public Use
  Company Number: FR-PFIZER INC-2020358192

PATIENT
  Age: 68 Year
  Sex: Male
  Weight: 69 kg

DRUGS (1)
  1. XELJANZ [Suspect]
     Active Substance: TOFACITINIB CITRATE
     Indication: PYODERMA GANGRENOSUM
     Dosage: 10 MG, 1X/DAY
     Route: 048
     Dates: start: 20200129, end: 20200901

REACTIONS (3)
  - Left ventricular dysfunction [Not Recovered/Not Resolved]
  - Off label use [Unknown]
  - Product use in unapproved indication [Unknown]

NARRATIVE: CASE EVENT DATE: 20200129
